FAERS Safety Report 7107626-5 (Version None)
Quarter: 2010Q4

REPORT INFORMATION
  Report Type: 
  Country: None (occurrence: None)
  Receive Date: 20101117
  Receipt Date: 20101102
  Transmission Date: 20110411
  Serious: Yes (Hospitalization)
  Sender: FDA-Public Use
  Company Number: NL-CELGENEUS-114-21880-10110115

PATIENT
  Sex: Female
  Weight: 75 kg

DRUGS (5)
  1. REVLIMID [Suspect]
     Indication: MULTIPLE MYELOMA
     Route: 048
     Dates: start: 20100922
  2. PREDNISONE [Suspect]
     Indication: MULTIPLE MYELOMA
     Route: 048
     Dates: start: 20100922
  3. MELPHALAN HYDROCHLORIDE [Suspect]
     Indication: MULTIPLE MYELOMA
     Route: 048
     Dates: start: 20100922
  4. CLEMASTINE FUMARATE [Concomitant]
     Indication: SUPPORTIVE CARE
     Route: 048
     Dates: start: 20100925
  5. GRANISETRON HCL [Concomitant]
     Indication: SUPPORTIVE CARE
     Route: 048
     Dates: start: 20100922

REACTIONS (1)
  - PYELONEPHRITIS [None]
